FAERS Safety Report 5078356-9 (Version None)
Quarter: 2006Q3

REPORT INFORMATION
  Report Type: 
  Country: None (occurrence: None)
  Receive Date: 20060811
  Receipt Date: 20060809
  Transmission Date: 20061208
  Serious: Yes (Death)
  Sender: FDA-Public Use
  Company Number: 25272

PATIENT
  Age: 65 Year
  Sex: Male

DRUGS (13)
  1. WELLBUTRIN [Suspect]
     Indication: DEPRESSION
     Dosage: 300MG PER DAY
     Route: 048
  2. LANOXIN [Suspect]
     Indication: TACHYARRHYTHMIA
     Dosage: .375MG PER DAY
     Route: 048
  3. NIASPAN [Suspect]
     Dosage: 1000MG PER DAY
     Route: 048
     Dates: start: 20060711, end: 20060711
  4. TRAZODONE HCL [Suspect]
     Indication: DEPRESSION
     Dosage: 200MG PER DAY
     Route: 048
  5. TENORMIN [Suspect]
     Indication: TACHYARRHYTHMIA
     Dosage: 100MG PER DAY
     Route: 048
  6. GLUCOPHAGE [Suspect]
     Indication: DIABETES MELLITUS
     Dosage: 1000MG TWICE PER DAY
     Route: 048
  7. GLUCOTROL XL [Suspect]
     Indication: DIABETES MELLITUS
     Dosage: 10MG PER DAY
     Route: 048
  8. ACTOS [Suspect]
     Indication: DIABETES MELLITUS
     Dosage: 45MG PER DAY
     Route: 048
  9. TRICOR [Suspect]
     Dosage: 160MG PER DAY
     Route: 048
  10. LANTUS [Suspect]
     Indication: DIABETES MELLITUS
     Dosage: 70U PER DAY
     Route: 058
  11. LIPITOR [Suspect]
     Indication: DRUG USE FOR UNKNOWN INDICATION
  12. EFFEXOR [Suspect]
     Indication: DEPRESSION
     Dosage: 150MG PER DAY
     Route: 048
  13. LORAZEPAM [Suspect]
     Indication: DEPRESSION
     Dosage: 2MG PER DAY
     Route: 048

REACTIONS (4)
  - DRUG INTERACTION [None]
  - FLUSHING [None]
  - MEDICATION ERROR [None]
  - MYOCARDIAL INFARCTION [None]
